FAERS Safety Report 26128898 (Version 1)
Quarter: 2025Q4

REPORT INFORMATION
  Report Type: Spontaneous
  Country: US (occurrence: US)
  Receive Date: 20251208
  Receipt Date: 20251208
  Transmission Date: 20260118
  Serious: Yes (Hospitalization)
  Sender: SPECGX
  Company Number: US-SPECGX-T202501942

PATIENT
  Sex: Female

DRUGS (2)
  1. PAMELOR [Suspect]
     Active Substance: NORTRIPTYLINE HYDROCHLORIDE
     Indication: Product used for unknown indication
     Dosage: UNK
     Route: 065
  2. QUETIAPINE [Suspect]
     Active Substance: QUETIAPINE
     Indication: Product used for unknown indication
     Dosage: UNK
     Route: 065

REACTIONS (8)
  - Early satiety [Unknown]
  - Haematemesis [Unknown]
  - Abdominal pain [Recovering/Resolving]
  - Abdominal rigidity [Recovering/Resolving]
  - Malnutrition [Unknown]
  - Abdominal distension [Unknown]
  - Weight decreased [Unknown]
  - Constipation [Unknown]
